FAERS Safety Report 7733724-9 (Version None)
Quarter: 2011Q3

REPORT INFORMATION
  Report Type: 
  Country: None (occurrence: None)
  Receive Date: 20110902
  Receipt Date: 20110902
  Transmission Date: 20111222
  Serious: Yes (Other)
  Sender: FDA-Public Use
  Company Number: None

PATIENT
  Age: 6 Year
  Sex: Female
  Weight: 27.2158 kg

DRUGS (1)
  1. SINGULAIR [Suspect]
     Indication: MULTIPLE ALLERGIES
     Dosage: 5 MG @ NIGHT
     Dates: start: 20110101

REACTIONS (4)
  - SUICIDAL IDEATION [None]
  - MOOD SWINGS [None]
  - AGGRESSION [None]
  - ABNORMAL DREAMS [None]
